FAERS Safety Report 7364489-0 (Version None)
Quarter: 2011Q1

REPORT INFORMATION
  Report Type: 
  Country: None (occurrence: None)
  Receive Date: 20110315
  Receipt Date: 20110315
  Transmission Date: 20110831
  Serious: No
  Sender: FDA-Public Use
  Company Number: None

PATIENT
  Age: 40 Year
  Sex: Female
  Weight: 50.5307 kg

DRUGS (2)
  1. PROAIR HFA [Suspect]
     Indication: BRONCHITIS
     Dosage: 2 PUFFS BID PO
     Route: 048
     Dates: start: 20100705, end: 20110309
  2. ERYTHROMYCIN [Suspect]

REACTIONS (8)
  - TREATMENT NONCOMPLIANCE [None]
  - CHILLS [None]
  - BLOOD PRESSURE INCREASED [None]
  - CHEST DISCOMFORT [None]
  - TREMOR [None]
  - DYSPNOEA [None]
  - FEELING COLD [None]
  - PALPITATIONS [None]
